FAERS Safety Report 20622542 (Version 1)
Quarter: 2022Q1

REPORT INFORMATION
  Report Type: Spontaneous
  Country: US (occurrence: None)
  Receive Date: 20220322
  Receipt Date: 20220322
  Transmission Date: 20220423
  Serious: No
  Sender: FDA-Public Use
  Company Number: None

PATIENT
  Age: 40 Year
  Sex: Male
  Weight: 81 kg

DRUGS (4)
  1. MAVYRET [Suspect]
     Active Substance: GLECAPREVIR\PIBRENTASVIR
     Indication: Chronic hepatitis C
     Dosage: FREQUENCY : DAILY;?
     Route: 048
     Dates: start: 20220221, end: 20220304
  2. MIRTAZAPINE [Concomitant]
     Active Substance: MIRTAZAPINE
  3. RISPERIDONE [Concomitant]
     Active Substance: RISPERIDONE
  4. VENLAFAXINE [Concomitant]
     Active Substance: VENLAFAXINE HYDROCHLORIDE

REACTIONS (4)
  - Headache [None]
  - Diarrhoea [None]
  - Drug intolerance [None]
  - Impaired work ability [None]

NARRATIVE: CASE EVENT DATE: 20220222
